FAERS Safety Report 8098217-0 (Version None)
Quarter: 2012Q1

REPORT INFORMATION
  Report Type: 
  Country: None (occurrence: None)
  Receive Date: 20120128
  Receipt Date: 20110719
  Transmission Date: 20120608
  Serious: No
  Sender: FDA-Public Use
  Company Number: US-ABBOTT-11P-163-0840242-00

PATIENT
  Age: 48 Year
  Sex: Female

DRUGS (14)
  1. NOSE SPRAY [Concomitant]
     Indication: HYPERSENSITIVITY
     Dosage: ONE PUFF PER NOSTRIL, BID
  2. PERCOCET [Concomitant]
     Indication: ARTHRALGIA
     Dosage: 7.5/325MG,BID
  3. VITAMIN TAB [Concomitant]
     Indication: PRODUCT USED FOR UNKNOWN INDICATION
     Dosage: DAILY
  4. CELEXA [Concomitant]
     Indication: DEPRESSION
     Dosage: 40 MG DAILY
  5. IBUPROFEN [Concomitant]
     Indication: ARTHRITIS
  6. HUMIRA [Suspect]
     Indication: RHEUMATOID ARTHRITIS
     Dates: start: 20110701
  7. ALBUTEROL [Concomitant]
     Indication: ASTHMA
  8. PROPRANOLOL [Concomitant]
     Indication: MIGRAINE
  9. VITAMIN D [Concomitant]
     Indication: PRODUCT USED FOR UNKNOWN INDICATION
     Dosage: DAILY
  10. FOLIC ACID [Concomitant]
     Indication: PRODUCT USED FOR UNKNOWN INDICATION
     Dosage: 2 MG DAILY
  11. FIORICET [Concomitant]
     Indication: MIGRAINE
  12. METHOTREXATE [Concomitant]
     Indication: PRODUCT USED FOR UNKNOWN INDICATION
     Dosage: WEEKLY
     Route: 050
  13. TEMAZEPAM [Concomitant]
     Indication: INSOMNIA
     Dosage: DAILY
  14. VITAMIN B-12 [Concomitant]
     Indication: PRODUCT USED FOR UNKNOWN INDICATION
     Dosage: DAILY

REACTIONS (1)
  - INJECTION SITE PAIN [None]
